FAERS Safety Report 7579487-1 (Version None)
Quarter: 2011Q2

REPORT INFORMATION
  Report Type: 
  Country: None (occurrence: None)
  Receive Date: 20110629
  Receipt Date: 20100116
  Transmission Date: 20111010
  Serious: Yes (Hospitalization, Other)
  Sender: FDA-Public Use
  Company Number: US-BAYER-201011377NA

PATIENT
  Age: 57 Year
  Sex: Female
  Weight: 91 kg

DRUGS (19)
  1. PROTAMINE SULFATE [Concomitant]
     Dosage: 200MG AFTER BYPASS
     Route: 042
     Dates: start: 20050401, end: 20050401
  2. PROTAMINE SULFATE [Concomitant]
     Dosage: 75MG AFTER PUMP BLOOD
     Route: 042
     Dates: start: 20050401, end: 20050401
  3. ACETAMINOPHEN [Concomitant]
     Dosage: PRN
     Route: 048
  4. TRASYLOL [Suspect]
     Indication: CORONARY ARTERY BYPASS
     Dosage: TEST DOSE -100ML CARDIOPULMONARY BYPASS PRIME
     Route: 042
     Dates: start: 20050401, end: 20050401
  5. RED BLOOD CELLS [Concomitant]
     Dosage: UNK
     Dates: start: 20050401
  6. METOPROLOL TARTRATE [Concomitant]
     Dosage: 25 MG, BID
     Route: 048
  7. HEPARIN [Concomitant]
     Dosage: UNK
     Route: 058
  8. LISINOPRIL [Concomitant]
     Dosage: 5 MG, QD
     Route: 048
  9. ACETYLSALICYLIC ACID SRT [Concomitant]
     Dosage: 81 MG, QD
     Route: 048
  10. LASIX [Concomitant]
     Dosage: 40 MG, BID
     Route: 048
  11. HEPARIN [Concomitant]
     Dosage: 10,000 UNITS PUMP PRIME
     Dates: end: 20050401
  12. TRASYLOL [Suspect]
     Indication: MITRAL VALVE REPLACEMENT
     Dosage: LOADING DOSE - 100ML LOADING DOSE WITH NO INFUSION FOLLOWING
  13. LASIX [Concomitant]
     Dosage: 40 MG
     Route: 042
     Dates: start: 20050401
  14. HEPARIN [Concomitant]
     Dosage: 15,000 UNITS
     Route: 042
     Dates: start: 20050401, end: 20050401
  15. MILRINONE [Concomitant]
     Dosage: LOADING DOSE
     Route: 042
     Dates: start: 20050401, end: 20050401
  16. MILRINONE [Concomitant]
     Dosage: 50MCG/KG
     Route: 042
     Dates: start: 20050401, end: 20050401
  17. PROTAMINE SULFATE [Concomitant]
  18. VANCOMYCIN [Concomitant]
     Dosage: 500 MG IRRIGATION
     Dates: start: 20050401, end: 20050401
  19. ALBUMIN (HUMAN) [Concomitant]
     Dosage: 45G PUMP PRIME
     Dates: start: 20050401, end: 20050401

REACTIONS (13)
  - ORGAN FAILURE [None]
  - FEAR [None]
  - UNEVALUABLE EVENT [None]
  - RENAL FAILURE [None]
  - ANXIETY [None]
  - DEPRESSION [None]
  - INJURY [None]
  - CEREBROVASCULAR ACCIDENT [None]
  - CARDIAC DISORDER [None]
  - RENAL INJURY [None]
  - ANHEDONIA [None]
  - RENAL IMPAIRMENT [None]
  - PAIN [None]
